FAERS Safety Report 5823676-0 (Version None)
Quarter: 2008Q3

REPORT INFORMATION
  Report Type: 
  Country: None (occurrence: None)
  Receive Date: 20080725
  Receipt Date: 20080715
  Transmission Date: 20090109
  Serious: Yes (Hospitalization)
  Sender: FDA-Public Use
  Company Number: US-PFIZER INC-2008044217

PATIENT
  Age: 75 Year
  Sex: Female
  Weight: 81.6 kg

DRUGS (10)
  1. SU-011,248 [Suspect]
     Indication: RENAL CELL CARCINOMA
     Route: 048
     Dates: start: 20071207, end: 20080505
  2. ERLOTINIB [Suspect]
     Indication: RENAL CELL CARCINOMA
     Route: 048
     Dates: start: 20071207, end: 20080505
  3. LOVENOX [Suspect]
     Dosage: TEXT:150 MG/ML
     Route: 058
  4. DIPHENOXYLATE [Concomitant]
     Route: 048
  5. LOPERAMIDE HCL [Concomitant]
  6. LEVOTHYROXINE SODIUM [Concomitant]
     Route: 048
  7. NYSTATIN [Concomitant]
     Dosage: FREQ:DAILY: 2-3 TIMES
     Route: 061
  8. OMEPRAZOLE [Concomitant]
     Route: 048
  9. POTASSIUM CHLORIDE [Concomitant]
     Dosage: DAILY DOSE:1
     Route: 048
  10. ENOXAPARIN SODIUM [Concomitant]
     Dosage: FREQ:DAILY
     Route: 058

REACTIONS (2)
  - CEREBRAL HAEMORRHAGE [None]
  - RENAL FAILURE ACUTE [None]
